FAERS Safety Report 25188286 (Version 1)
Quarter: 2025Q2

REPORT INFORMATION
  Report Type: Spontaneous
  Country: GB (occurrence: GB)
  Receive Date: 20250411
  Receipt Date: 20250411
  Transmission Date: 20250717
  Serious: Yes (Hospitalization, Other)
  Sender: RANBAXY
  Company Number: GB-MHRA-MED-202503301205340890-KQRLS

PATIENT
  Age: 10 Year
  Sex: Male

DRUGS (1)
  1. RISPERIDONE [Suspect]
     Active Substance: RISPERIDONE
     Indication: Attention deficit hyperactivity disorder
     Route: 065
     Dates: start: 20250328, end: 20250328

REACTIONS (6)
  - Oculogyric crisis [Recovered/Resolved]
  - Dysphagia [Recovered/Resolved]
  - Torticollis [Recovered/Resolved]
  - Muscle rigidity [Recovered/Resolved]
  - Drooling [Recovered/Resolved]
  - Dyskinesia [Recovered/Resolved]

NARRATIVE: CASE EVENT DATE: 20250328
